FAERS Safety Report 7366546-1 (Version None)
Quarter: 2011Q1

REPORT INFORMATION
  Report Type: 
  Country: None (occurrence: None)
  Receive Date: 20110322
  Receipt Date: 20110315
  Transmission Date: 20110831
  Serious: Yes (Life-Threatening)
  Sender: FDA-Public Use
  Company Number: FR-KINGPHARMUSA00001-K201100271

PATIENT
  Age: 62 Year
  Sex: Male

DRUGS (7)
  1. ALTACE [Suspect]
     Indication: HYPERTENSION
     Dosage: 20 MG, QD
     Route: 048
     Dates: start: 20030101, end: 20110303
  2. LUVION [Concomitant]
  3. ASPIRIN [Concomitant]
  4. ESKIM [Concomitant]
  5. SOTALOL HCL [Concomitant]
  6. LASIX [Concomitant]
  7. ADALAT [Concomitant]

REACTIONS (6)
  - RESPIRATORY TRACT OEDEMA [None]
  - LARYNGEAL OEDEMA [None]
  - CARDIAC ARREST [None]
  - LOCALISED OEDEMA [None]
  - DYSPNOEA [None]
  - TONGUE OEDEMA [None]
